FAERS Safety Report 6158376-3 (Version None)
Quarter: 2009Q2

REPORT INFORMATION
  Report Type: 
  Country: None (occurrence: None)
  Receive Date: 20090417
  Receipt Date: 20071121
  Transmission Date: 20091009
  Serious: Yes (Death, Hospitalization, Other)
  Sender: FDA-Public Use
  Company Number: US-ASTRAZENECA-2006UW21593

PATIENT
  Age: 17715 Day
  Sex: Female
  Weight: 124.7 kg

DRUGS (33)
  1. SEROQUEL [Suspect]
     Indication: SCHIZOPHRENIA
     Route: 048
  2. SEROQUEL [Suspect]
     Indication: DEPRESSION
     Route: 048
  3. ZOLOFT [Concomitant]
  4. SYNTHROID [Concomitant]
  5. ALTACE [Concomitant]
  6. LOPRESSOR [Concomitant]
  7. WELLBUTRIN [Concomitant]
  8. PLAVIX [Concomitant]
  9. TRAZODONE HCL [Concomitant]
  10. LASIX [Concomitant]
  11. INSULIN [Concomitant]
  12. ASPIRIN [Concomitant]
  13. DEMADEX [Concomitant]
  14. VASOTEC [Concomitant]
  15. CHROMAGEN [Concomitant]
  16. CARDIZEM [Concomitant]
  17. ULTRAM [Concomitant]
  18. AXID [Concomitant]
  19. K-DUR [Concomitant]
  20. ESTRADIOL [Concomitant]
  21. DAYPRO [Concomitant]
  22. LOTRISONE [Concomitant]
  23. KEFLEX [Concomitant]
  24. REZULIN [Concomitant]
  25. DARVOCET [Concomitant]
  26. TOPAMAX [Concomitant]
  27. DESYREL [Concomitant]
  28. LANTUS [Concomitant]
  29. REGLAN [Concomitant]
  30. BENADRYL [Concomitant]
  31. BUSPAR [Concomitant]
  32. CIPROFLOXACIN HCL [Concomitant]
  33. FOLIC ACID [Concomitant]

REACTIONS (27)
  - ANGINA UNSTABLE [None]
  - AZOTAEMIA [None]
  - CARDIAC FAILURE CONGESTIVE [None]
  - CHEST PAIN [None]
  - CONVULSION [None]
  - CORONARY ARTERY DISEASE [None]
  - DEHYDRATION [None]
  - DIABETES MELLITUS [None]
  - DIABETIC HYPEROSMOLAR COMA [None]
  - DIARRHOEA [None]
  - DIVERTICULITIS [None]
  - DYSPNOEA [None]
  - ESCHERICHIA URINARY TRACT INFECTION [None]
  - HEADACHE [None]
  - HYPERTHYROIDISM [None]
  - IRON DEFICIENCY [None]
  - LUMBAR VERTEBRAL FRACTURE [None]
  - MUSCULAR WEAKNESS [None]
  - OESOPHAGEAL STENOSIS [None]
  - OSTEOARTHRITIS [None]
  - OVARIAN NEOPLASM [None]
  - REFLUX OESOPHAGITIS [None]
  - RENAL FAILURE [None]
  - SUICIDAL IDEATION [None]
  - THROAT TIGHTNESS [None]
  - TRAUMATIC BRAIN INJURY [None]
  - WOUND ABSCESS [None]
